FAERS Safety Report 10497377 (Version 6)
Quarter: 2015Q3

REPORT INFORMATION
  Report Type: Report from Study
  Country: US (occurrence: US)
  Receive Date: 20141006
  Receipt Date: 20150921
  Transmission Date: 20151125
  Serious: Yes (Hospitalization, Other)
  Sender: FDA-Public Use
  Company Number: US-BAYER-2014-144469

PATIENT
  Age: 57 Year
  Sex: Female
  Weight: 86.17 kg

DRUGS (42)
  1. GAMMAGARD [Concomitant]
     Active Substance: HUMAN IMMUNOGLOBULIN G
  2. NEURONTIN [Concomitant]
     Active Substance: GABAPENTIN
     Dosage: 100 MG, UNK
  3. VOLTAREN [Concomitant]
     Active Substance: DICLOFENAC SODIUM
     Dosage: 1 %, UNK
  4. DEMADEX [Concomitant]
     Active Substance: TORSEMIDE
     Dosage: 20 MG, UNK
     Dates: start: 20140909
  5. PROAIR HFA [Concomitant]
     Active Substance: ALBUTEROL SULFATE
  6. SYMBICORT [Concomitant]
     Active Substance: BUDESONIDE\FORMOTEROL FUMARATE DIHYDRATE
     Dosage: UNK
     Dates: start: 20141017
  7. EXCEDRIN [CAFFEINE,PARACETAMOL] [Concomitant]
  8. ADEMPAS [Suspect]
     Active Substance: RIOCIGUAT
     Indication: PULMONARY ARTERIAL HYPERTENSION
     Dosage: 1 MG, TID
     Route: 048
     Dates: start: 20140807
  9. ADEMPAS [Suspect]
     Active Substance: RIOCIGUAT
     Indication: PULMONARY ARTERIAL HYPERTENSION
     Dosage: 1.5 MG, TID
     Route: 048
     Dates: start: 20140915, end: 20140916
  10. BENTYL [Concomitant]
     Active Substance: DICYCLOMINE HYDROCHLORIDE
     Dosage: 10 MG, UNK
  11. ZYPREXA [Concomitant]
     Active Substance: OLANZAPINE
     Dosage: 20 MG, UNK
  12. BUDESONIDE. [Concomitant]
     Active Substance: BUDESONIDE
  13. LEVOTHYROXINE. [Concomitant]
     Active Substance: LEVOTHYROXINE
  14. ADEMPAS [Suspect]
     Active Substance: RIOCIGUAT
     Indication: PULMONARY ARTERIAL HYPERTENSION
     Dosage: 2.5 MG, TID
     Route: 048
  15. TRACLEER [Concomitant]
     Active Substance: BOSENTAN
  16. KLONOPIN [Concomitant]
     Active Substance: CLONAZEPAM
  17. CELEXA [Concomitant]
     Active Substance: CITALOPRAM HYDROBROMIDE
     Dosage: 20 MG, UNK
  18. MUCINEX [Concomitant]
     Active Substance: GUAIFENESIN
     Dosage: 600 MG, UNK
  19. FERROUS SULFATE [Concomitant]
     Active Substance: FERROUS SULFATE\FERROUS SULFATE, DRIED
  20. ADEMPAS [Suspect]
     Active Substance: RIOCIGUAT
     Indication: PULMONARY ARTERIAL HYPERTENSION
     Dosage: 2 MG, TID
     Route: 048
     Dates: end: 20141212
  21. ADEMPAS [Suspect]
     Active Substance: RIOCIGUAT
     Indication: PULMONARY ARTERIAL HYPERTENSION
     Dosage: 1.5 MG, UNK
     Route: 048
     Dates: start: 20150415
  22. AMITRIPTYLIN [Concomitant]
     Active Substance: AMITRIPTYLINE
  23. PRADAXA [Concomitant]
     Active Substance: DABIGATRAN ETEXILATE MESYLATE
     Dosage: 75 MG, UNK
     Dates: start: 20140606
  24. SPIRONOLACTONE. [Concomitant]
     Active Substance: SPIRONOLACTONE
  25. WARFARIN [Concomitant]
     Active Substance: WARFARIN
  26. ELAVIL [Concomitant]
     Active Substance: AMITRIPTYLINE HYDROCHLORIDE
     Dosage: 50 MG, UNK
  27. VENTOLIN [Concomitant]
     Active Substance: ALBUTEROL SULFATE
  28. DOXYCYCLINE HYCLATE. [Concomitant]
     Active Substance: DOXYCYCLINE HYCLATE
  29. ADEMPAS [Suspect]
     Active Substance: RIOCIGUAT
     Indication: PULMONARY ARTERIAL HYPERTENSION
     Dosage: 0.5 MG, TID
     Dates: start: 20140819
  30. ADEMPAS [Suspect]
     Active Substance: RIOCIGUAT
     Indication: PULMONARY ARTERIAL HYPERTENSION
     Dosage: 1 MG, TID
     Route: 048
  31. MVI [Concomitant]
     Active Substance: VITAMINS
  32. PERCOCET [Concomitant]
     Active Substance: ACETAMINOPHEN\OXYCODONE HYDROCHLORIDE
     Dosage: 10-325 MG
  33. BACLOFEN. [Concomitant]
     Active Substance: BACLOFEN
  34. SPIRIVA [Concomitant]
     Active Substance: TIOTROPIUM BROMIDE MONOHYDRATE
  35. FLOVENT [Concomitant]
     Active Substance: FLUTICASONE PROPIONATE
  36. MORPHINE SULFATE. [Concomitant]
     Active Substance: MORPHINE SULFATE
  37. CALCIUM [Concomitant]
     Active Substance: CALCIUM
  38. TYVASO [Suspect]
     Active Substance: TREPROSTINIL
     Indication: PULMONARY ARTERIAL HYPERTENSION
     Dosage: 18-54 MCG, QID
     Route: 055
     Dates: start: 20130906
  39. KLOR-CON [Concomitant]
     Active Substance: POTASSIUM CHLORIDE
  40. TORSEMIDE. [Concomitant]
     Active Substance: TORSEMIDE
  41. CARDIZEM [Concomitant]
     Active Substance: DILTIAZEM HYDROCHLORIDE
     Dosage: 120 MG, UNK
  42. NEXIUM [Concomitant]
     Active Substance: ESOMEPRAZOLE MAGNESIUM
     Dosage: 20 MG, UNK

REACTIONS (28)
  - Chronic obstructive pulmonary disease [Recovered/Resolved]
  - Cytomegalovirus infection [Unknown]
  - Aortic stenosis [None]
  - Drug dose omission [None]
  - Intentional product use issue [None]
  - Blood pressure decreased [None]
  - Hypotension [None]
  - Blood pressure decreased [Recovered/Resolved]
  - Pulmonary embolism [None]
  - Peripheral swelling [None]
  - Dyspnoea [None]
  - Transient ischaemic attack [None]
  - Pneumonia [Recovered/Resolved]
  - Cardiac failure congestive [Unknown]
  - Hypoxia [None]
  - Fatigue [Recovered/Resolved]
  - Headache [None]
  - Dyspnoea [None]
  - Dyspnoea [None]
  - Chronic obstructive pulmonary disease [None]
  - Respiratory failure [Unknown]
  - Dizziness [None]
  - Tremor [None]
  - Fungal infection [Unknown]
  - Epistaxis [None]
  - Anaemia [None]
  - Fatigue [None]
  - Intentional product misuse [None]

NARRATIVE: CASE EVENT DATE: 2014
